FAERS Safety Report 24430995 (Version 1)
Quarter: 2024Q4

REPORT INFORMATION
  Report Type: Spontaneous
  Country: JP (occurrence: JP)
  Receive Date: 20241014
  Receipt Date: 20241014
  Transmission Date: 20250115
  Serious: Yes (Other)
  Sender: JUBILANT
  Company Number: None

PATIENT
  Age: 70 Year
  Sex: Male

DRUGS (13)
  1. LAMOTRIGINE [Suspect]
     Active Substance: LAMOTRIGINE
     Indication: Bipolar I disorder
     Dosage: 100 MG DAILY
  2. LAMOTRIGINE [Suspect]
     Active Substance: LAMOTRIGINE
     Dosage: 25 MG
  3. OLANZAPINE [Suspect]
     Active Substance: OLANZAPINE
     Indication: Abdominal pain
     Dosage: 2.5 MG
  4. OLANZAPINE [Suspect]
     Active Substance: OLANZAPINE
     Indication: Agitation
  5. OLANZAPINE [Suspect]
     Active Substance: OLANZAPINE
     Indication: Anxiety
  6. RISPERIDONE [Suspect]
     Active Substance: RISPERIDONE
     Indication: Bipolar I disorder
     Dosage: 1.5 MG
  7. ARIPIPRAZOLE [Suspect]
     Active Substance: ARIPIPRAZOLE
     Indication: Bipolar I disorder
     Dosage: 24 MG
  8. BLONANSERIN [Suspect]
     Active Substance: BLONANSERIN
     Indication: Bipolar I disorder
     Dosage: 8 MG
  9. ZOTEPINE [Suspect]
     Active Substance: ZOTEPINE
     Indication: Bipolar I disorder
     Dosage: 25 MG
  10. LURASIDONE [Suspect]
     Active Substance: LURASIDONE
     Indication: Abdominal pain
     Dosage: 20 MG
  11. LURASIDONE [Suspect]
     Active Substance: LURASIDONE
     Indication: Agitation
  12. LURASIDONE [Suspect]
     Active Substance: LURASIDONE
     Indication: Anxiety
  13. HERBALS [Concomitant]
     Active Substance: HERBALS
     Indication: Bipolar I disorder
     Dosage: 7.5 G

REACTIONS (6)
  - Pleurothotonus [Recovered/Resolved]
  - Agitation [Not Recovered/Not Resolved]
  - Anxiety [Not Recovered/Not Resolved]
  - Restlessness [Unknown]
  - Glucose tolerance impaired [Unknown]
  - Pyrexia [Unknown]
